FAERS Safety Report 23560907 (Version 1)
Quarter: 2024Q1

REPORT INFORMATION
  Report Type: Spontaneous
  Country: GB (occurrence: None)
  Receive Date: 20240223
  Receipt Date: 20240223
  Transmission Date: 20240409
  Serious: Yes (Other)
  Sender: FDA-Public Use
  Company Number: GB-MDD US Operations-MDD202402-000678

PATIENT
  Age: 76 Year

DRUGS (22)
  1. APOMORPHINE HYDROCHLORIDE [Suspect]
     Active Substance: APOMORPHINE HYDROCHLORIDE
     Indication: Product used for unknown indication
     Dosage: VARIABLE RATE INFUSION
  2. RIVAROXABAN [Concomitant]
     Active Substance: RIVAROXABAN
     Dosage: NOT PROVIDED
  3. ACETAMINOPHEN [Concomitant]
     Active Substance: ACETAMINOPHEN
     Dosage: NOT PROVIDED
  4. OMEPRAZOLE [Concomitant]
     Active Substance: OMEPRAZOLE
     Dosage: NOT PROVIDED
  5. ALBUTEROL [Concomitant]
     Active Substance: ALBUTEROL
     Dosage: NOT PROVIDED
  6. ZOPICLONE [Concomitant]
     Active Substance: ZOPICLONE
     Dosage: NOT PROVIDED
  7. MIRTAZAPINE [Concomitant]
     Active Substance: MIRTAZAPINE
     Dosage: NOT PROVIDED
  8. FOLIC ACID [Concomitant]
     Active Substance: FOLIC ACID
     Dosage: NOT PROVIDED
  9. FINASTERIDE [Concomitant]
     Active Substance: FINASTERIDE
     Dosage: NOT PROVIDED
  10. DOMPERIDONE [Concomitant]
     Active Substance: DOMPERIDONE
     Dosage: NOT PROVIDED
  11. SENNA [Concomitant]
     Active Substance: SENNA LEAF\SENNOSIDES\SENNOSIDES A AND B
     Dosage: NOT PROVIDED
  12. SAFINAMIDE [Concomitant]
     Active Substance: SAFINAMIDE
     Dosage: NOT PROVIDED
  13. PRIMIDONE [Concomitant]
     Active Substance: PRIMIDONE
     Dosage: NOT PROVIDED
  14. CYCLIZINE [Concomitant]
     Active Substance: CYCLIZINE
     Dosage: NOT PROVIDED
  15. LANTUS [Concomitant]
     Active Substance: INSULIN GLARGINE
     Dosage: NOT PROVIDED
  16. STALEVO [Concomitant]
     Active Substance: CARBIDOPA\ENTACAPONE\LEVODOPA
     Dosage: NOT PROVIDED
  17. NOVORAPID [Concomitant]
     Active Substance: INSULIN ASPART
     Dosage: NOT PROVIDED
  18. BENSERAZIDE HYDROCHLORIDE\LEVODOPA [Concomitant]
     Active Substance: BENSERAZIDE HYDROCHLORIDE\LEVODOPA
     Dosage: NOT PROVIDED
  19. DERMOL [Concomitant]
     Active Substance: BENZALKONIUM CHLORIDE\CHLORHEXIDINE HYDROCHLORIDE\ISOPROPYL MYRISTATE\PARAFFIN
     Dosage: NOT PROVIDED
  20. BETAMETHASONE VALERATE\FUSIDIC ACID [Concomitant]
     Active Substance: BETAMETHASONE VALERATE\FUSIDIC ACID
     Dosage: NOT PROVIDED
  21. CALCIUM CARBONATE\CHOLECALCIFEROL [Concomitant]
     Active Substance: CALCIUM CARBONATE\CHOLECALCIFEROL
     Dosage: NOT PROVIDED
  22. ACLIDINIUM BROMIDE [Concomitant]
     Active Substance: ACLIDINIUM BROMIDE
     Dosage: NOT PROVIDED

REACTIONS (1)
  - Hyperglycaemia [Unknown]
